FAERS Safety Report 14846121 (Version 1)
Quarter: 2018Q2

REPORT INFORMATION
  Report Type: Spontaneous
  Country: DE (occurrence: DE)
  Receive Date: 20180504
  Receipt Date: 20180504
  Transmission Date: 20180711
  Serious: Yes (Hospitalization, Other)
  Sender: FDA-Public Use
  Company Number: PHHY2016DE186728

PATIENT
  Age: 71 Year
  Sex: Male

DRUGS (19)
  1. OLANZAPINE. [Suspect]
     Active Substance: OLANZAPINE
     Indication: PRODUCT USED FOR UNKNOWN INDICATION
     Dosage: 15 MG, UNK
     Route: 065
     Dates: start: 20130109, end: 20130217
  2. LORAZEPAM. [Interacting]
     Active Substance: LORAZEPAM
     Dosage: 2.5 MG, UNK
     Route: 065
  3. LORAZEPAM. [Interacting]
     Active Substance: LORAZEPAM
     Dosage: 1.5 MG, UNK
     Route: 065
  4. ABILIFY [Interacting]
     Active Substance: ARIPIPRAZOLE
     Dosage: 10 MG, UNK
     Route: 065
     Dates: start: 20130107, end: 20130109
  5. TAVOR (LORAZEPAM) [Interacting]
     Active Substance: LORAZEPAM
     Dosage: 2.5 MG, UNK
     Route: 065
  6. ZYPREXA [Interacting]
     Active Substance: OLANZAPINE
     Dosage: 20 MG, UNK
     Route: 065
  7. ABILIFY [Interacting]
     Active Substance: ARIPIPRAZOLE
     Indication: PRODUCT USED FOR UNKNOWN INDICATION
     Dosage: 5 MG, UNK
     Route: 065
     Dates: start: 20130104, end: 20130106
  8. ERGENYL CHRONO [Concomitant]
     Active Substance: VALPROIC ACID
     Indication: PRODUCT USED FOR UNKNOWN INDICATION
     Dosage: UNK
     Route: 065
  9. TAVOR (LORAZEPAM) [Interacting]
     Active Substance: LORAZEPAM
     Dosage: 1 MG, UNK
     Route: 065
     Dates: start: 20130103, end: 20130108
  10. ABILIFY [Interacting]
     Active Substance: ARIPIPRAZOLE
     Dosage: 15 MG, UNK
     Route: 065
     Dates: start: 20130112, end: 20130116
  11. TAVOR (LORAZEPAM) [Interacting]
     Active Substance: LORAZEPAM
     Indication: PRODUCT USED FOR UNKNOWN INDICATION
     Dosage: 1.5 MG, UNK
     Route: 065
  12. TAVOR (LORAZEPAM) [Interacting]
     Active Substance: LORAZEPAM
     Dosage: 3 MG, UNK
     Route: 065
     Dates: start: 20130110, end: 20130115
  13. ABILIFY [Interacting]
     Active Substance: ARIPIPRAZOLE
     Dosage: 20 MG, UNK
     Route: 065
  14. ZYPREXA [Interacting]
     Active Substance: OLANZAPINE
     Indication: PRODUCT USED FOR UNKNOWN INDICATION
     Dosage: 15 MG, UNK
     Route: 065
     Dates: start: 20130109, end: 20130217
  15. LORAZEPAM. [Interacting]
     Active Substance: LORAZEPAM
     Indication: PRODUCT USED FOR UNKNOWN INDICATION
     Dosage: 1 MG, UNK
     Route: 065
     Dates: start: 20130103, end: 20130108
  16. LORAZEPAM. [Interacting]
     Active Substance: LORAZEPAM
     Dosage: 3 MG, UNK
     Route: 065
     Dates: start: 20130110, end: 20130115
  17. ABILIFY [Interacting]
     Active Substance: ARIPIPRAZOLE
     Dosage: 15 MG, UNK
     Route: 065
  18. OLANZAPINE. [Interacting]
     Active Substance: OLANZAPINE
     Dosage: 20 MG, UNK
     Route: 065
  19. AKINETON [Concomitant]
     Active Substance: BIPERIDEN HYDROCHLORIDE
     Indication: PRODUCT USED FOR UNKNOWN INDICATION
     Dosage: UNK
     Route: 065
     Dates: start: 20130104, end: 20130109

REACTIONS (2)
  - Drug interaction [Unknown]
  - Parkinsonism [Unknown]

NARRATIVE: CASE EVENT DATE: 20130116
